FAERS Safety Report 7659913-X (Version None)
Quarter: 2011Q3

REPORT INFORMATION
  Report Type: 
  Country: None (occurrence: None)
  Receive Date: 20110805
  Receipt Date: 20110729
  Transmission Date: 20111222
  Serious: Yes (Hospitalization)
  Sender: FDA-Public Use
  Company Number: IT-GENENTECH-322129

PATIENT
  Sex: Male

DRUGS (4)
  1. METOCLOPRAMIDE HYDROCHLORIDE [Concomitant]
     Indication: PRODUCT USED FOR UNKNOWN INDICATION
     Route: 042
  2. MABTHERA [Suspect]
     Indication: PRODUCT USED FOR UNKNOWN INDICATION
     Dosage: 500 MG, UNK
     Route: 042
     Dates: start: 20110718, end: 20110718
  3. DEXAMETHASONE SODIUM PHOSPHATE [Concomitant]
     Indication: PRODUCT USED FOR UNKNOWN INDICATION
     Route: 042
  4. MABTHERA [Suspect]
     Route: 042

REACTIONS (9)
  - HYPOTENSION [None]
  - CYANOSIS [None]
  - SENSATION OF HEAVINESS [None]
  - INFUSION RELATED REACTION [None]
  - TACHYCARDIA [None]
  - FEELING HOT [None]
  - HYPERHIDROSIS [None]
  - TREMOR [None]
  - PYREXIA [None]
